FAERS Safety Report 8362861-3 (Version None)
Quarter: 2012Q2

REPORT INFORMATION
  Report Type: 
  Country: None (occurrence: None)
  Receive Date: 20120516
  Receipt Date: 20120514
  Transmission Date: 20120825
  Serious: Yes (Death)
  Sender: FDA-Public Use
  Company Number: FR-BAYER-2012-047316

PATIENT

DRUGS (1)
  1. SORAFENIB (RAF KINASE INHIBITOR) [Suspect]
     Dosage: UNK
     Dates: start: 20111018, end: 20111114

REACTIONS (4)
  - BLOOD CULTURE POSITIVE [None]
  - INFECTIOUS PERITONITIS [None]
  - LIVER ABSCESS [None]
  - PLEURAL EFFUSION [None]
